FAERS Safety Report 23693092 (Version 1)
Quarter: 2024Q2

REPORT INFORMATION
  Report Type: Spontaneous
  Country: US (occurrence: None)
  Receive Date: 20240401
  Receipt Date: 20240401
  Transmission Date: 20240716
  Serious: Yes (Hospitalization)
  Sender: FDA-Public Use
  Company Number: None

PATIENT
  Age: 52 Year
  Sex: Male
  Weight: 105.2 kg

DRUGS (1)
  1. CISPLATIN [Suspect]
     Active Substance: CISPLATIN
     Dates: end: 20160202

REACTIONS (4)
  - Bronchitis [None]
  - Metapneumovirus infection [None]
  - Lung opacity [None]
  - Bronchial wall thickening [None]

NARRATIVE: CASE EVENT DATE: 20231203
